FAERS Safety Report 9761315 (Version 1)
Quarter: 2013Q4

REPORT INFORMATION
  Report Type: Spontaneous
  Country: US (occurrence: US)
  Receive Date: 20131216
  Receipt Date: 20131216
  Transmission Date: 20140711
  Serious: Yes (Other)
  Sender: FDA-Public Use
  Company Number: US-BAYER-2013-150121

PATIENT
  Age: 51 Year
  Sex: Male

DRUGS (8)
  1. ACETYLSALICYLIC ACID (} 100 MG) [Suspect]
     Indication: EMBOLISM
     Dosage: UNK
     Route: 048
  2. PLAVIX [Interacting]
     Indication: EMBOLISM
     Dosage: 75 MG, UNK
     Route: 048
  3. PEPCID [Concomitant]
     Dosage: 10 MG, UNK
     Route: 048
  4. CRESTOR [Concomitant]
     Dosage: 10 MG, UNK
     Route: 048
  5. ZETIA [Concomitant]
     Dosage: 10 MG, UNK
     Route: 048
  6. ZESTRIL [Concomitant]
     Dosage: 20 MG, UNK
     Route: 048
  7. TOPROL [Concomitant]
     Dosage: 100 MG, UNK
  8. SYNTHROID [Concomitant]
     Dosage: 50 MG, UNK

REACTIONS (2)
  - Post procedural haemorrhage [Recovered/Resolved]
  - Labelled drug-drug interaction medication error [None]
